FAERS Safety Report 19303564 (Version 1)
Quarter: 2021Q2

REPORT INFORMATION
  Report Type: Spontaneous
  Country: MX (occurrence: MX)
  Receive Date: 20210525
  Receipt Date: 20210525
  Transmission Date: 20210717
  Serious: Yes (Other)
  Sender: FDA-Public Use
  Company Number: MX-ASTRAZENECA-2021A457964

PATIENT
  Age: 54 Year
  Sex: Female
  Weight: 63 kg

DRUGS (10)
  1. ARCOXIA [Concomitant]
     Active Substance: ETORICOXIB
     Dosage: 120 MG
     Route: 065
  2. NORFLEX PLUS GB [Concomitant]
     Route: 065
  3. RELPAX [Concomitant]
     Active Substance: ELETRIPTAN HYDROBROMIDE
     Dosage: 80 MG
     Route: 065
  4. PLAQUENIL [Concomitant]
     Active Substance: HYDROXYCHLOROQUINE SULFATE
     Dosage: 200 MG
     Route: 065
  5. CONTROLIP [Concomitant]
     Active Substance: FENOFIBRATE
     Dosage: 145 MG / 20 MG
     Route: 065
  6. LYRICA [Concomitant]
     Active Substance: PREGABALIN
     Dosage: 150 MG
     Route: 065
  7. COSENTYX [Concomitant]
     Active Substance: SECUKINUMAB
     Indication: ANKYLOSING SPONDYLITIS
     Route: 058
  8. NEXIUM MUPS [Suspect]
     Active Substance: ESOMEPRAZOLE
     Route: 048
  9. PLASCLEDINE [Concomitant]
     Dosage: 300 MG
     Route: 065
  10. LEXAPRO [Concomitant]
     Active Substance: ESCITALOPRAM OXALATE
     Dosage: 10 MG
     Route: 065

REACTIONS (10)
  - Enthesopathy [Not Recovered/Not Resolved]
  - Back pain [Unknown]
  - Arthralgia [Not Recovered/Not Resolved]
  - Exposure during pregnancy [Unknown]
  - Vasculitis [Unknown]
  - Fibromyalgia [Not Recovered/Not Resolved]
  - Raynaud^s phenomenon [Unknown]
  - Hyperlipidaemia [Not Recovered/Not Resolved]
  - Fatigue [Unknown]
  - Erythema [Not Recovered/Not Resolved]
